FAERS Safety Report 9301753 (Version 1)
Quarter: 2013Q2

REPORT INFORMATION
  Report Type: Spontaneous
  Country: None (occurrence: US)
  Receive Date: 20130521
  Receipt Date: 20130521
  Transmission Date: 20140414
  Serious: No
  Sender: FDA-Public Use
  Company Number: US-TEVA-403287USA

PATIENT
  Sex: 0

DRUGS (1)
  1. NUVIGIL [Suspect]
     Indication: BIPOLAR DISORDER

REACTIONS (2)
  - Agitation [Unknown]
  - Off label use [Unknown]
